FAERS Safety Report 14546086 (Version 5)
Quarter: 2019Q4

REPORT INFORMATION
  Report Type: Report from Study
  Country: US (occurrence: US)
  Receive Date: 20180219
  Receipt Date: 20191030
  Transmission Date: 20200122
  Serious: Yes (Other)
  Sender: FDA-Public Use
  Company Number: US-ROCHE-2069561

PATIENT

DRUGS (2)
  1. CAPECITABINE. [Suspect]
     Active Substance: CAPECITABINE
     Indication: GLIOBLASTOMA
     Dosage: ON DAYS 1-28 IN 28-DAY CYCLES
     Route: 048
  2. BEVACIZUMAB. [Suspect]
     Active Substance: BEVACIZUMAB
     Indication: GLIOBLASTOMA
     Dosage: ON DAYS 1 (+/- 3 DAYS) AND 15 (+/- 3 DAYS) OF EACH CYCLE.
     Route: 042

REACTIONS (7)
  - Anaemia [Unknown]
  - Diverticular perforation [Unknown]
  - Haemorrhage intracranial [Unknown]
  - Dyspnoea [Unknown]
  - Palmar-plantar erythrodysaesthesia syndrome [Unknown]
  - Pyrexia [Unknown]
  - Embolism [Unknown]
